FAERS Safety Report 10732879 (Version 1)
Quarter: 2015Q1

REPORT INFORMATION
  Report Type: Spontaneous
  Country: US (occurrence: US)
  Receive Date: 20150123
  Receipt Date: 20150123
  Transmission Date: 20150721
  Serious: Yes (Other)
  Sender: FDA-Public Use
  Company Number: US-RB PHARMACEUTICALS LIMITED-RB-074956-2015

PATIENT
  Sex: Male

DRUGS (4)
  1. SUBOXONE [Suspect]
     Active Substance: BUPRENORPHINE HYDROCHLORIDE\NALOXONE HYDROCHLORIDE
     Indication: DIARRHOEA
  2. TINCTURE OF OPIUM [Concomitant]
     Active Substance: OPIUM
     Indication: DIARRHOEA
  3. SUBOXONE [Suspect]
     Active Substance: BUPRENORPHINE HYDROCHLORIDE\NALOXONE HYDROCHLORIDE
     Indication: CROHN^S DISEASE
     Dosage: 16 MG, DAILY
     Route: 060
     Dates: start: 201412
  4. TINCTURE OF OPIUM [Concomitant]
     Active Substance: OPIUM
     Indication: CROHN^S DISEASE
     Dosage: UNK
     Route: 065

REACTIONS (4)
  - Gait disturbance [Unknown]
  - Off label use [Not Recovered/Not Resolved]
  - Incoherent [Unknown]
  - Confusional state [Unknown]

NARRATIVE: CASE EVENT DATE: 201412
